FAERS Safety Report 5415513-3 (Version None)
Quarter: 2007Q3

REPORT INFORMATION
  Report Type: 
  Country: None (occurrence: None)
  Receive Date: 20070815
  Receipt Date: 20070813
  Transmission Date: 20080115
  Serious: Yes (Hospitalization, Congenital Anomaly)
  Sender: FDA-Public Use
  Company Number: A0626411A

PATIENT
  Sex: Female
  Weight: 2.2 kg

DRUGS (8)
  1. PAXIL [Suspect]
     Indication: MIGRAINE
     Dosage: 20MG TWICE PER DAY
     Dates: start: 20000201, end: 20010925
  2. MAGNESIUM SULFATE [Concomitant]
     Dates: start: 20020402
  3. REGLAN [Concomitant]
  4. ZOFRAN [Concomitant]
  5. PHENERGAN HCL [Concomitant]
  6. PROGESTERONE [Concomitant]
  7. VITAMIN AND MINERAL PRENATAL SUPPLEMENT W/ FOLIC ACID CAP [Concomitant]
  8. RELPAX [Concomitant]

REACTIONS (29)
  - AORTIC VALVE INCOMPETENCE [None]
  - APNOEA [None]
  - ARTERIAL STENOSIS [None]
  - ATELECTASIS [None]
  - ATRIAL SEPTAL DEFECT [None]
  - BUNDLE BRANCH BLOCK RIGHT [None]
  - CARDIAC ARREST [None]
  - CARDIAC MURMUR [None]
  - CARDIOMEGALY [None]
  - CYANOSIS [None]
  - DRUG EXPOSURE DURING PREGNANCY [None]
  - DYSPNOEA [None]
  - FALLOT'S TETRALOGY [None]
  - HEART DISEASE CONGENITAL [None]
  - HYPERHIDROSIS [None]
  - HYPOTONIA [None]
  - LUNG DISORDER [None]
  - METABOLIC ACIDOSIS [None]
  - MITRAL VALVE INCOMPETENCE [None]
  - OXYGEN SATURATION DECREASED [None]
  - PATENT DUCTUS ARTERIOSUS [None]
  - PERICARDIAL EFFUSION [None]
  - PILONIDAL CYST CONGENITAL [None]
  - PREMATURE BABY [None]
  - RESPIRATORY FAILURE [None]
  - SEPSIS [None]
  - TRICUSPID VALVE INCOMPETENCE [None]
  - VENTRICULAR HYPERTROPHY [None]
  - VENTRICULAR SEPTAL DEFECT [None]
